FAERS Safety Report 5698280-8 (Version None)
Quarter: 2008Q2

REPORT INFORMATION
  Report Type: 
  Country: None (occurrence: None)
  Receive Date: 20080408
  Receipt Date: 20080402
  Transmission Date: 20081010
  Serious: Yes (Other)
  Sender: FDA-Public Use
  Company Number: US-BOEHRINGER INGELHEIM GMBH, GERMANY-2008-BP-05255BP

PATIENT
  Sex: Female

DRUGS (5)
  1. SPIRIVA [Suspect]
     Indication: BRONCHITIS CHRONIC
     Dates: start: 20060801
  2. SPIRIVA [Suspect]
     Indication: ASTHMA
  3. ADVAIR HFA [Concomitant]
     Indication: DYSPNOEA
  4. ALBUTEROL SULFATE [Concomitant]
     Indication: DYSPNOEA
  5. ALBUTEROL [Concomitant]
     Indication: DYSPNOEA

REACTIONS (2)
  - DYSPHAGIA [None]
  - THROAT TIGHTNESS [None]
